FAERS Safety Report 9688981 (Version 1)
Quarter: 2013Q4

REPORT INFORMATION
  Report Type: Spontaneous
  Country: US (occurrence: US)
  Receive Date: 20131114
  Receipt Date: 20131114
  Transmission Date: 20140711
  Serious: Yes (Hospitalization)
  Sender: FDA-Public Use
  Company Number: US-GLAXOSMITHKLINE-B0940145A

PATIENT
  Age: 50 Year
  Sex: Female

DRUGS (3)
  1. LAMOTRIGINE [Suspect]
     Indication: DEPRESSION
     Route: 065
  2. CYCLOBENZAPRINE [Suspect]
     Indication: PAIN
     Dosage: 10MG THREE TIMES PER DAY
     Route: 065
  3. ESCITALOPRAM [Concomitant]
     Indication: DEPRESSION
     Dosage: 10MG PER DAY

REACTIONS (18)
  - Drug reaction with eosinophilia and systemic symptoms [Recovered/Resolved]
  - Drug interaction [Unknown]
  - Rash papular [Unknown]
  - Pruritus [Unknown]
  - Skin disorder [Unknown]
  - Oral disorder [Unknown]
  - Papule [Unknown]
  - Pyrexia [Unknown]
  - Rash maculo-papular [Unknown]
  - Blister [Unknown]
  - Skin exfoliation [Unknown]
  - Rash vesicular [Unknown]
  - Leukocytosis [Unknown]
  - Tongue eruption [Unknown]
  - Skin oedema [Unknown]
  - Neutrophilia [Unknown]
  - Eosinophilia [Unknown]
  - White blood cell count increased [Unknown]
